FAERS Safety Report 9805356 (Version 2)
Quarter: 2014Q1

REPORT INFORMATION
  Report Type: Spontaneous
  Country: CA (occurrence: None)
  Receive Date: 20140106
  Receipt Date: 20140203
  Transmission Date: 20141002
  Serious: Yes (Other)
  Sender: FDA-Public Use
  Company Number: 2013AP010821

PATIENT
  Age: 57 Year
  Sex: Female

DRUGS (7)
  1. METFORMIN [Suspect]
     Indication: WEIGHT CONTROL
  2. METFORMIN [Suspect]
     Indication: DIABETES MELLITUS
  3. METFORMIN [Suspect]
     Indication: PROPHYLAXIS
  4. ASPIRIN (ACETYLSALICYLIC ACID) [Concomitant]
  5. ROSUVASTATIN (ROSUVASTATIN) [Concomitant]
  6. VALSARTAN (VALSARTAN) [Concomitant]
  7. HYDROCHLOROTHIAZIDE (HYDROCHLOROTHIAZIDE) [Concomitant]

REACTIONS (4)
  - Vaginal haemorrhage [None]
  - Uterine leiomyoma [None]
  - Biopsy endometrium abnormal [None]
  - Postmenopausal haemorrhage [None]
